FAERS Safety Report 12379274 (Version 1)
Quarter: 2016Q2

REPORT INFORMATION
  Report Type: Spontaneous
  Country: US (occurrence: US)
  Receive Date: 20160517
  Receipt Date: 20160517
  Transmission Date: 20160815
  Serious: No
  Sender: FDA-Public Use
  Company Number: US-RELYPSA-RLY2016000358

PATIENT

DRUGS (12)
  1. COENZYME Q10 [Concomitant]
     Active Substance: UBIDECARENONE
  2. ALLOPURINOL. [Concomitant]
     Active Substance: ALLOPURINOL
  3. METOPROLOL SUCCINATE. [Concomitant]
     Active Substance: METOPROLOL SUCCINATE
  4. VELTASSA [Suspect]
     Active Substance: PATIROMER
     Indication: HYPERKALAEMIA
     Dosage: 8.4 G, DAILY
     Route: 048
     Dates: start: 20160324
  5. LASIX [Concomitant]
     Active Substance: FUROSEMIDE
  6. MULTIVITAMIN                       /07504101/ [Concomitant]
     Active Substance: VITAMINS
  7. TYLENOL CHEST CONGESTION [Concomitant]
  8. VALSARTAN. [Concomitant]
     Active Substance: VALSARTAN
  9. PRAVASTATIN SODIUM. [Concomitant]
     Active Substance: PRAVASTATIN SODIUM
  10. ASPIRIN                            /00002701/ [Concomitant]
     Active Substance: ASPIRIN
  11. OMEPRAZOLE. [Concomitant]
     Active Substance: OMEPRAZOLE
  12. VITAMIN D                          /00107901/ [Concomitant]
     Active Substance: ERGOCALCIFEROL

REACTIONS (1)
  - Constipation [Unknown]
